FAERS Safety Report 5132811-1 (Version None)
Quarter: 2006Q4

REPORT INFORMATION
  Report Type: 
  Country: None (occurrence: None)
  Receive Date: 20061017
  Receipt Date: 20061004
  Transmission Date: 20070319
  Serious: Yes (Hospitalization)
  Sender: FDA-Public Use
  Company Number: MEDI-0004988

PATIENT
  Age: 8 Month

DRUGS (3)
  1. SYNAGIS [Suspect]
     Indication: ANTIVIRAL PROPHYLAXIS
     Dosage: 45 MG, INTRAMUSCULAR; 28 MG, INTRAMUSCULAR; 40 MG, INTRAMUSCULAR
     Route: 030
     Dates: start: 20060119, end: 20060317
  2. SYNAGIS [Suspect]
     Indication: ANTIVIRAL PROPHYLAXIS
     Dosage: 45 MG, INTRAMUSCULAR; 28 MG, INTRAMUSCULAR; 40 MG, INTRAMUSCULAR
     Route: 030
     Dates: start: 20060119
  3. SYNAGIS [Suspect]
     Indication: ANTIVIRAL PROPHYLAXIS
     Dosage: 45 MG, INTRAMUSCULAR; 28 MG, INTRAMUSCULAR; 40 MG, INTRAMUSCULAR
     Route: 030
     Dates: start: 20060217

REACTIONS (1)
  - HYPERTHERMIA [None]
